FAERS Safety Report 15551737 (Version 1)
Quarter: 2018Q4

REPORT INFORMATION
  Report Type: Report from Study
  Country: None (occurrence: TR)
  Receive Date: 20181025
  Receipt Date: 20181025
  Transmission Date: 20190205
  Serious: Yes (Hospitalization)
  Sender: FDA-Public Use
  Company Number: TR-ABBVIE-17K-161-2183616-00

PATIENT
  Age: 65 Year
  Sex: Female
  Weight: 70 kg

DRUGS (1)
  1. DUODOPA [Suspect]
     Active Substance: CARBIDOPA\LEVODOPA
     Indication: PARKINSON^S DISEASE
     Dosage: MORNING DOSE(ML):0.00, CONTINOUS DOSE(ML):2.00?EXTRA DOSE(ML):1.00
     Route: 050
     Dates: start: 20150729

REACTIONS (5)
  - Stoma site infection [Not Recovered/Not Resolved]
  - Embedded device [Recovered/Resolved]
  - Stoma site erythema [Not Recovered/Not Resolved]
  - Asthenia [Not Recovered/Not Resolved]
  - Stoma site discharge [Not Recovered/Not Resolved]

NARRATIVE: CASE EVENT DATE: 20171127
